FAERS Safety Report 7608543-4 (Version None)
Quarter: 2011Q3

REPORT INFORMATION
  Report Type: 
  Country: None (occurrence: None)
  Receive Date: 20110714
  Receipt Date: 20110701
  Transmission Date: 20111222
  Serious: Yes (Other)
  Sender: FDA-Public Use
  Company Number: PHHY2011CA44709

PATIENT
  Sex: Male

DRUGS (5)
  1. ALISKIREN [Suspect]
     Indication: HYPERTENSION
     Dosage: 300 MG, QD
     Route: 048
     Dates: start: 20100210
  2. DIOVAN [Concomitant]
     Dosage: 160 MG, UNK
  3. ATENOLOL [Concomitant]
     Dosage: 50 MG, UNK
  4. CRESTOR [Concomitant]
     Dosage: 10 MG, UNK
  5. TIAZAC [Concomitant]
     Dosage: 240 MG, UNK

REACTIONS (1)
  - URINE ALBUMIN/CREATININE RATIO INCREASED [None]
